FAERS Safety Report 22655774 (Version 1)
Quarter: 2023Q2

REPORT INFORMATION
  Report Type: Spontaneous
  Country: US (occurrence: None)
  Receive Date: 20230629
  Receipt Date: 20230629
  Transmission Date: 20230721
  Serious: Yes (Other)
  Sender: FDA-Public Use
  Company Number: None

PATIENT
  Age: 68 Year
  Sex: Female
  Weight: 96.3 kg

DRUGS (2)
  1. IMBRUVICA [Suspect]
     Active Substance: IBRUTINIB
  2. IMBRUVICA [Concomitant]
     Active Substance: IBRUTINIB

REACTIONS (1)
  - Blood urine present [None]

NARRATIVE: CASE EVENT DATE: 20230628
